FAERS Safety Report 8071508-5 (Version None)
Quarter: 2012Q1

REPORT INFORMATION
  Report Type: 
  Country: None (occurrence: None)
  Receive Date: 20120125
  Receipt Date: 20120117
  Transmission Date: 20120608
  Serious: Yes (Other)
  Sender: FDA-Public Use
  Company Number: CHPA2012US001624

PATIENT
  Age: 68 Year
  Sex: Male

DRUGS (4)
  1. EXCEDRIN (MIGRAINE) [Suspect]
     Indication: MIGRAINE
     Dosage: 2 DF, UNK
     Route: 048
  2. EXCEDRIN EXTRA STRENGTH TABLETS [Concomitant]
     Indication: MIGRAINE
     Dosage: 2 DF, UNK
  3. TALWIN [Concomitant]
     Indication: MIGRAINE
     Dosage: UNK
  4. BENADRYL ^WARNER-LAMBERT^               /USA/ [Concomitant]
     Indication: MIGRAINE
     Dosage: 1-2 DF, UNK

REACTIONS (2)
  - CONVULSION [None]
  - THERAPEUTIC RESPONSE DECREASED [None]
